FAERS Safety Report 6427340-9 (Version None)
Quarter: 2009Q4

REPORT INFORMATION
  Report Type: 
  Country: None (occurrence: None)
  Receive Date: 20091104
  Receipt Date: 20091027
  Transmission Date: 20100525
  Serious: Yes (Death)
  Sender: FDA-Public Use
  Company Number: GB-TEVA-213604ISR

PATIENT
  Age: 30 Year
  Sex: Male

DRUGS (4)
  1. SERTRALINE HCL [Suspect]
     Indication: DEPRESSION
     Route: 048
     Dates: start: 20081101, end: 20090301
  2. SERTRALINE HCL [Suspect]
     Indication: PERSONALITY DISORDER
  3. QUETIAPINE [Suspect]
     Indication: DEPRESSION
     Route: 048
     Dates: start: 20081101, end: 20090301
  4. QUETIAPINE [Suspect]
     Indication: PERSONALITY DISORDER

REACTIONS (2)
  - ALCOHOL INTERACTION [None]
  - ALCOHOL POISONING [None]
